FAERS Safety Report 12235751 (Version 1)
Quarter: 2016Q2

REPORT INFORMATION
  Report Type: Spontaneous
  Country: US (occurrence: US)
  Receive Date: 20160404
  Receipt Date: 20160404
  Transmission Date: 20160815
  Serious: Yes (Death, Other)
  Sender: FDA-Public Use
  Company Number: US-BAYER-2016-057731

PATIENT
  Age: 47 Year
  Sex: Male

DRUGS (2)
  1. SORAFENIB (RAF KINASE INHIBITOR) [Suspect]
     Active Substance: SORAFENIB
     Indication: RENAL CELL CARCINOMA STAGE IV
     Route: 048
  2. SUNITINIB [Concomitant]
     Active Substance: SUNITINIB
     Indication: RENAL CELL CARCINOMA STAGE IV

REACTIONS (2)
  - Cardiogenic shock [Fatal]
  - Systolic dysfunction [None]
